FAERS Safety Report 9825752 (Version 1)
Quarter: 2014Q1

REPORT INFORMATION
  Report Type: Spontaneous
  Country: US (occurrence: None)
  Receive Date: 20140116
  Receipt Date: 20140116
  Transmission Date: 20141002
  Serious: Yes (Hospitalization)
  Sender: FDA-Public Use
  Company Number: None

PATIENT
  Age: 63 Year
  Sex: Male
  Weight: 92 kg

DRUGS (14)
  1. RITUXIMAB [Suspect]
     Route: 042
     Dates: start: 20130627
  2. AMLODIPINE [Concomitant]
  3. ATENOLOL [Concomitant]
  4. TRICOR [Concomitant]
  5. CRESTOR [Concomitant]
  6. PRILOSEC [Concomitant]
  7. PLAVIX [Concomitant]
  8. ASA [Concomitant]
  9. METFORMIN [Concomitant]
  10. VITAMIN D [Concomitant]
  11. MAGOXIDE [Concomitant]
  12. MVI [Concomitant]
  13. LOSARTAN [Concomitant]
  14. NITROGLYCERN [Concomitant]

REACTIONS (2)
  - Chest pain [None]
  - Electrocardiogram abnormal [None]
